FAERS Safety Report 7635084-0 (Version None)
Quarter: 2011Q3

REPORT INFORMATION
  Report Type: 
  Country: None (occurrence: None)
  Receive Date: 20110718
  Receipt Date: 20110711
  Transmission Date: 20111222
  Serious: Yes (Hospitalization, Disabling, Other)
  Sender: FDA-Public Use
  Company Number: 2007-152597-NL

PATIENT
  Age: 23 Year
  Sex: Female
  Weight: 73.9 kg

DRUGS (3)
  1. ORTHO EVRA [Suspect]
     Indication: PRODUCT USED FOR UNKNOWN INDICATION
     Dosage: ;TDER
     Route: 062
     Dates: start: 20030301
  2. NEXIUM [Concomitant]
  3. NUVARING [Suspect]
     Indication: CONTRACEPTION
     Dosage: ;VAG
     Route: 067
     Dates: start: 20050801

REACTIONS (51)
  - CORONARY ARTERY THROMBOSIS [None]
  - PROTEIN S DEFICIENCY [None]
  - PERIPHERAL ARTERIAL OCCLUSIVE DISEASE [None]
  - TREATMENT NONCOMPLIANCE [None]
  - MAJOR DEPRESSION [None]
  - ILIAC ARTERY STENOSIS [None]
  - ALCOHOL USE [None]
  - ACUTE MYOCARDIAL INFARCTION [None]
  - PERICARDIAL EFFUSION [None]
  - CONGESTIVE CARDIOMYOPATHY [None]
  - DYSPNOEA [None]
  - CONTUSION [None]
  - MITRAL VALVE INCOMPETENCE [None]
  - VENTRICULAR TACHYCARDIA [None]
  - EJECTION FRACTION DECREASED [None]
  - CHEST PAIN [None]
  - DILATATION VENTRICULAR [None]
  - NEURALGIA [None]
  - VAGINITIS BACTERIAL [None]
  - DYSLIPIDAEMIA [None]
  - COUGH [None]
  - PALPITATIONS [None]
  - ILIAC ARTERY THROMBOSIS [None]
  - NICOTINE DEPENDENCE [None]
  - HYPERCOAGULATION [None]
  - ROAD TRAFFIC ACCIDENT [None]
  - MUSCLE SPASMS [None]
  - OBESITY [None]
  - SINUS TACHYCARDIA [None]
  - POST-TRAUMATIC STRESS DISORDER [None]
  - BLOOD CHOLESTEROL INCREASED [None]
  - ABORTION INDUCED [None]
  - PREGNANCY [None]
  - TRICUSPID VALVE INCOMPETENCE [None]
  - ISCHAEMIC CARDIOMYOPATHY [None]
  - PERIPHERAL VASCULAR DISORDER [None]
  - PAIN IN EXTREMITY [None]
  - PANIC DISORDER [None]
  - COGNITIVE DISORDER [None]
  - UNEMPLOYMENT [None]
  - FATIGUE [None]
  - MATERNAL EXPOSURE BEFORE PREGNANCY [None]
  - INTERMITTENT CLAUDICATION [None]
  - REFUSAL OF TREATMENT BY PATIENT [None]
  - ECONOMIC PROBLEM [None]
  - CORONARY ARTERY OCCLUSION [None]
  - LEFT VENTRICULAR DYSFUNCTION [None]
  - HERPES SIMPLEX [None]
  - DYSTHYMIC DISORDER [None]
  - ANXIETY [None]
  - CERVICAL DYSPLASIA [None]
